FAERS Safety Report 16239456 (Version 1)
Quarter: 2019Q2

REPORT INFORMATION
  Report Type: Spontaneous
  Country: HU (occurrence: HU)
  Receive Date: 20190425
  Receipt Date: 20190425
  Transmission Date: 20190711
  Serious: Yes (Other)
  Sender: FDA-Public Use
  Company Number: PHHY2019HU091569

PATIENT
  Age: 76 Year
  Sex: Male

DRUGS (5)
  1. SYNCUMAR [Interacting]
     Active Substance: ACENOCOUMAROL
     Indication: CARDIAC OPERATION
     Dosage: UNK
     Route: 065
  2. ROSUVASTATIN. [Suspect]
     Active Substance: ROSUVASTATIN
     Indication: CARDIAC OPERATION
     Dosage: UNK
     Route: 065
  3. PANTOPRAZOL [Concomitant]
     Active Substance: PANTOPRAZOLE SODIUM
     Indication: GASTROOESOPHAGEAL REFLUX DISEASE
     Dosage: UNK
     Route: 065
  4. ASPIRIN PROTECT [Concomitant]
     Active Substance: ASPIRIN
     Indication: CARDIAC OPERATION
     Dosage: UNK
     Route: 065
  5. DUODART [Interacting]
     Active Substance: DUTASTERIDE\TAMSULOSIN
     Indication: BENIGN PROSTATIC HYPERPLASIA
     Dosage: UNK
     Route: 048

REACTIONS (5)
  - Drug interaction [Not Recovered/Not Resolved]
  - Arrhythmia [Not Recovered/Not Resolved]
  - Hypotension [Not Recovered/Not Resolved]
  - Malaise [Not Recovered/Not Resolved]
  - Palpitations [Not Recovered/Not Resolved]

NARRATIVE: CASE EVENT DATE: 201901
